FAERS Safety Report 9531123 (Version 1)
Quarter: 2013Q2

REPORT INFORMATION
  Report Type: Spontaneous
  Country: US (occurrence: None)
  Receive Date: 20130402
  Receipt Date: 20130402
  Transmission Date: 20140414
  Serious: Yes (Death, Hospitalization)
  Sender: FDA-Public Use
  Company Number: 2012-003604

PATIENT
  Age: 13 Year
  Sex: Female

DRUGS (4)
  1. LOESTRIN 24 FE [Suspect]
     Indication: DYSFUNCTIONAL UTERINE BLEEDING
     Route: 048
  2. IMMUNOGLOBULIN [Suspect]
     Indication: AUTOIMMUNE THROMBOCYTOPENIA
     Dosage: OVER 4 HOURS
     Route: 042
  3. IRON [Concomitant]
  4. GLUCOSE [Concomitant]

REACTIONS (8)
  - Jugular vein thrombosis [None]
  - Headache [None]
  - Vomiting [None]
  - Mental status changes [None]
  - Somnolence [None]
  - Aphasia [None]
  - Brain oedema [None]
  - Brain death [None]
